FAERS Safety Report 8495139-8 (Version None)
Quarter: 2012Q2

REPORT INFORMATION
  Report Type: 
  Country: None (occurrence: None)
  Receive Date: 20120628
  Receipt Date: 20120620
  Transmission Date: 20120825
  Serious: Yes (Hospitalization, Other)
  Sender: FDA-Public Use
  Company Number: ADR-2012-01173

PATIENT
  Sex: Female

DRUGS (1)
  1. BACLOFEN [Suspect]
     Indication: MUSCLE SPASTICITY

REACTIONS (7)
  - INCONTINENCE [None]
  - IMMUNE SYSTEM DISORDER [None]
  - MUSCLE SPASMS [None]
  - MUSCLE SPASTICITY [None]
  - SENSORY LOSS [None]
  - DRUG INEFFECTIVE [None]
  - HYPOTONIA [None]
